FAERS Safety Report 5717191-2 (Version None)
Quarter: 2008Q2

REPORT INFORMATION
  Report Type: 
  Country: None (occurrence: None)
  Receive Date: 20080423
  Receipt Date: 20080408
  Transmission Date: 20081010
  Serious: No
  Sender: FDA-Public Use
  Company Number: 2008S1003836

PATIENT
  Age: 47 Year
  Sex: Male

DRUGS (3)
  1. FENTANYL TRANSDERMAL SYSTEM [Suspect]
     Indication: NECK PAIN
     Dosage: 100 UG; EVERY HOUR; TRANSDERMAL
     Route: 062
     Dates: start: 20060101
  2. FENTANYL TRANSDERMAL SYSTEM [Suspect]
     Indication: NECK PAIN
     Dosage: 100 UG; EVERY HOUR; TRANSDERMAL
     Route: 062
     Dates: start: 19990101, end: 20050101
  3. FENTANYL CITRATE [Concomitant]

REACTIONS (10)
  - ANOREXIA [None]
  - CONDITION AGGRAVATED [None]
  - DEPENDENCE [None]
  - DIARRHOEA [None]
  - DRUG EFFECT DECREASED [None]
  - INSOMNIA [None]
  - NECK PAIN [None]
  - PAIN [None]
  - THERAPEUTIC RESPONSE UNEXPECTED WITH DRUG SUBSTITUTION [None]
  - WITHDRAWAL SYNDROME [None]
